FAERS Safety Report 19236646 (Version 1)
Quarter: 2021Q2

REPORT INFORMATION
  Report Type: Spontaneous
  Country: US (occurrence: US)
  Receive Date: 20210507
  Receipt Date: 20210507
  Transmission Date: 20210717
  Serious: Yes (Hospitalization)
  Sender: FDA-Public Use
  Company Number: None

PATIENT
  Age: 80 Year
  Sex: Male

DRUGS (12)
  1. LOSARTAN. [Concomitant]
     Active Substance: LOSARTAN
  2. BUMETANIDE. [Concomitant]
     Active Substance: BUMETANIDE
  3. IMATINIB MES [Suspect]
     Active Substance: IMATINIB MESYLATE
     Route: 048
     Dates: start: 20180313
  4. FOLIC ACID. [Concomitant]
     Active Substance: FOLIC ACID
  5. GABAPENTIN. [Concomitant]
     Active Substance: GABAPENTIN
  6. DULOXETINE. [Concomitant]
     Active Substance: DULOXETINE
  7. QVAR [Concomitant]
     Active Substance: BECLOMETHASONE DIPROPIONATE
  8. PRAVASTATIN. [Concomitant]
     Active Substance: PRAVASTATIN
  9. LOSARTAN. [Concomitant]
     Active Substance: LOSARTAN
  10. TAMSULOSIN [Concomitant]
     Active Substance: TAMSULOSIN
  11. FEROSUL [Concomitant]
     Active Substance: FERROUS SULFATE
  12. OMEPRAZOLE. [Concomitant]
     Active Substance: OMEPRAZOLE

REACTIONS (1)
  - Hospitalisation [None]

NARRATIVE: CASE EVENT DATE: 20210507
